FAERS Safety Report 4690505-0 (Version None)
Quarter: 2005Q2

REPORT INFORMATION
  Report Type: 
  Country: None (occurrence: None)
  Receive Date: 20050615
  Receipt Date: 20050309
  Transmission Date: 20051028
  Serious: Yes (Hospitalization, Other)
  Sender: FDA-Public Use
  Company Number: US-MERCK-0503USA02126

PATIENT
  Age: 62 Year
  Sex: Female
  Weight: 95 kg

DRUGS (16)
  1. VIOXX [Suspect]
     Indication: ARTHRALGIA
     Route: 048
     Dates: start: 19990901, end: 20040901
  2. VICODIN [Concomitant]
     Indication: PAIN
     Route: 065
     Dates: start: 20000101
  3. HYDROCODONE HYDROCHLORIDE [Concomitant]
     Indication: ARTHRITIS
     Route: 065
     Dates: start: 20010625, end: 20020718
  4. HYDROCODONE HYDROCHLORIDE [Concomitant]
     Route: 065
     Dates: start: 20020701
  5. TYLENOL W/ CODEINE NO. 3 [Concomitant]
     Route: 065
  6. CALCIUM (UNSPECIFIED) [Concomitant]
     Route: 065
  7. FOSAMAX [Concomitant]
     Indication: ARTHRITIS
     Route: 065
  8. CELEBREX [Concomitant]
     Indication: PAIN
     Route: 065
     Dates: start: 19990201, end: 19990901
  9. VITAMIN B COMPLEX [Concomitant]
     Route: 065
  10. VITAMINS (UNSPECIFIED) [Concomitant]
     Route: 065
  11. AMOXICILLIN [Concomitant]
     Route: 065
  12. ZYBAN [Concomitant]
     Route: 065
  13. FLONASE [Concomitant]
     Route: 065
  14. COMBIVENT [Concomitant]
     Route: 065
  15. DILOR [Concomitant]
     Route: 065
  16. VITAMIN E [Concomitant]
     Route: 065

REACTIONS (41)
  - ANGINA PECTORIS [None]
  - ANORECTAL DISORDER [None]
  - BLADDER DISORDER [None]
  - BLOOD TRIGLYCERIDES INCREASED [None]
  - BRAIN STEM INFARCTION [None]
  - BRAIN STEM ISCHAEMIA [None]
  - CARDIAC DISORDER [None]
  - CEREBRAL ISCHAEMIA [None]
  - CEREBROVASCULAR ACCIDENT [None]
  - CHRONIC OBSTRUCTIVE PULMONARY DISEASE [None]
  - CONFUSIONAL STATE [None]
  - CONSTIPATION [None]
  - CORONARY ARTERIAL STENT INSERTION [None]
  - CORONARY ARTERY DISEASE [None]
  - COUGH [None]
  - DEAFNESS [None]
  - DEHYDRATION [None]
  - DEPRESSION [None]
  - DIZZINESS [None]
  - DYSPHAGIA [None]
  - DYSPNOEA [None]
  - DYSPNOEA EXERTIONAL [None]
  - EYELID PTOSIS [None]
  - HAEMORRHOIDS [None]
  - HEADACHE [None]
  - HYPERLIPIDAEMIA [None]
  - HYPERTENSION [None]
  - INSOMNIA [None]
  - MIGRAINE [None]
  - OEDEMA PERIPHERAL [None]
  - PAIN IN EXTREMITY [None]
  - PALPITATIONS [None]
  - PARAESTHESIA [None]
  - PERIPHERAL VASCULAR DISORDER [None]
  - RESTLESS LEGS SYNDROME [None]
  - SINUS DISORDER [None]
  - SLEEP APNOEA SYNDROME [None]
  - TINNITUS [None]
  - TRANSIENT ISCHAEMIC ATTACK [None]
  - VASCULAR PSEUDOANEURYSM RUPTURED [None]
  - WHEEZING [None]
